FAERS Safety Report 25047090 (Version 1)
Quarter: 2025Q1

REPORT INFORMATION
  Report Type: Spontaneous
  Country: GB (occurrence: GB)
  Receive Date: 20250306
  Receipt Date: 20250306
  Transmission Date: 20250408
  Serious: Yes (Other)
  Sender: SANDOZ
  Company Number: None

PATIENT
  Age: 44 Year
  Sex: Female
  Weight: 81 kg

DRUGS (5)
  1. NYSTATIN [Suspect]
     Active Substance: NYSTATIN
     Indication: Oral infection
     Route: 065
     Dates: start: 20250226
  2. DESOGESTREL [Concomitant]
     Active Substance: DESOGESTREL
     Indication: Oral contraception
     Route: 065
  3. CETIRIZINE [Concomitant]
     Active Substance: CETIRIZINE HYDROCHLORIDE
     Indication: Asthma
     Route: 065
  4. BECLOMETHASONE DIPROPIONATE [Concomitant]
     Active Substance: BECLOMETHASONE DIPROPIONATE
     Indication: Asthma
     Route: 065
  5. SEREVENT DISKUS [Concomitant]
     Active Substance: SALMETEROL XINAFOATE
     Indication: Asthma
     Route: 065

REACTIONS (2)
  - Chromaturia [Not Recovered/Not Resolved]
  - Headache [Not Recovered/Not Resolved]

NARRATIVE: CASE EVENT DATE: 20250227
